FAERS Safety Report 25837111 (Version 1)
Quarter: 2025Q3

REPORT INFORMATION
  Report Type: Spontaneous
  Country: CN (occurrence: CN)
  Receive Date: 20250923
  Receipt Date: 20250923
  Transmission Date: 20251020
  Serious: Yes (Other)
  Sender: DR REDDYS
  Company Number: None

PATIENT
  Age: 54 Year
  Sex: Male

DRUGS (10)
  1. DOXORUBICIN [Suspect]
     Active Substance: DOXORUBICIN
     Indication: Lymphocytic leukaemia
     Dosage: ON DAY 1 /THERAPY START DATE 13-APR-2024
     Dates: start: 2024, end: 2024
  2. DOXORUBICIN [Suspect]
     Active Substance: DOXORUBICIN
     Indication: Natural killer-cell leukaemia
  3. VINDESINE [Suspect]
     Active Substance: VINDESINE
     Indication: Lymphocytic leukaemia
     Dosage: ON DAY 1 /THERAPY START DATE 13-APR-2024
     Dates: start: 2024, end: 2024
  4. VINDESINE [Suspect]
     Active Substance: VINDESINE
     Indication: Natural killer-cell leukaemia
  5. PREDNISONE [Suspect]
     Active Substance: PREDNISONE
     Indication: Lymphocytic leukaemia
     Dosage: FROM DAYS 1-5 /THERAPY START DATE 13-APR-2024
     Dates: start: 2024, end: 2024
  6. PREDNISONE [Suspect]
     Active Substance: PREDNISONE
     Indication: Natural killer-cell leukaemia
  7. CYCLOPHOSPHAMIDE [Suspect]
     Active Substance: CYCLOPHOSPHAMIDE
     Indication: Lymphocytic leukaemia
     Dosage: ON DAY 1 /THERAPY START DATE 13-APR-2024
     Dates: start: 2024, end: 2024
  8. CYCLOPHOSPHAMIDE [Suspect]
     Active Substance: CYCLOPHOSPHAMIDE
     Indication: Natural killer-cell leukaemia
  9. CYCLOSPORINE [Concomitant]
     Active Substance: CYCLOSPORINE
     Indication: Lymphocytic leukaemia
     Dates: start: 2024
  10. CYCLOSPORINE [Concomitant]
     Active Substance: CYCLOSPORINE
     Indication: Natural killer-cell leukaemia

REACTIONS (2)
  - Myelosuppression [Recovered/Resolved]
  - Infection [Recovered/Resolved]

NARRATIVE: CASE EVENT DATE: 20240101
